FAERS Safety Report 20888722 (Version 1)
Quarter: 2022Q2

REPORT INFORMATION
  Report Type: Spontaneous
  Country: ES (occurrence: ES)
  Receive Date: 20220529
  Receipt Date: 20220529
  Transmission Date: 20220720
  Serious: Yes (Other)
  Sender: FDA-Public Use
  Company Number: None

PATIENT
  Age: 72 Year
  Sex: Male

DRUGS (2)
  1. ERTAPENEM SODIUM [Interacting]
     Active Substance: ERTAPENEM SODIUM
     Indication: Enterobacter sepsis
     Dosage: 1 GRAM, QD
     Route: 042
     Dates: start: 20211228, end: 20220108
  2. TEICOPLANIN [Interacting]
     Active Substance: TEICOPLANIN
     Indication: Enterobacter sepsis
     Dosage: 200 MILLIGRAM, QD
     Route: 042
     Dates: start: 20220105, end: 20220108

REACTIONS (2)
  - Delirium [Recovered/Resolved]
  - Disorientation [Recovered/Resolved]

NARRATIVE: CASE EVENT DATE: 20220108
